FAERS Safety Report 6909170-4 (Version None)
Quarter: 2010Q3

REPORT INFORMATION
  Report Type: 
  Country: None (occurrence: None)
  Receive Date: 20100805
  Receipt Date: 20100727
  Transmission Date: 20110219
  Serious: Yes (Death)
  Sender: FDA-Public Use
  Company Number: US-JNJFOC-20100507394

PATIENT
  Age: 76 Year
  Sex: Female
  Weight: 39.92 kg

DRUGS (6)
  1. CHILDREN'S MOTRIN [Suspect]
     Route: 048
  2. CHILDREN'S MOTRIN [Suspect]
     Indication: PAIN MANAGEMENT
     Route: 048
  3. CHILDREN'S TYLENOL SUSPENSION [Suspect]
  4. CHILDREN'S TYLENOL SUSPENSION [Suspect]
     Indication: PAIN
  5. INHALER [Concomitant]
     Indication: RESPIRATORY DISORDER
  6. PAIN MEDICATION [Concomitant]

REACTIONS (3)
  - LOWER RESPIRATORY TRACT INFECTION BACTERIAL [None]
  - PRODUCT QUALITY ISSUE [None]
  - TRANSMISSION OF AN INFECTIOUS AGENT VIA A MEDICINAL PRODUCT [None]
